FAERS Safety Report 9272907 (Version 4)
Quarter: 2013Q4

REPORT INFORMATION
  Report Type: Spontaneous
  Country: DE (occurrence: DE)
  Receive Date: 20130506
  Receipt Date: 20131125
  Transmission Date: 20140711
  Serious: Yes (Hospitalization, Other)
  Sender: FDA-Public Use
  Company Number: PHHY2013DE043039

PATIENT
  Sex: Male

DRUGS (2)
  1. GLIVEC [Suspect]
     Dosage: UNK UKN, UNK
     Dates: start: 2009
  2. GLIVEC [Suspect]
     Dosage: UNK UKN, UNK
     Dates: end: 2013

REACTIONS (3)
  - Dementia [Not Recovered/Not Resolved]
  - Affect lability [Not Recovered/Not Resolved]
  - Aggression [Recovered/Resolved]
